FAERS Safety Report 6544197-6 (Version None)
Quarter: 2010Q1

REPORT INFORMATION
  Report Type: 
  Country: None (occurrence: None)
  Receive Date: 20100120
  Receipt Date: 20100112
  Transmission Date: 20100710
  Serious: Yes (Death, Hospitalization)
  Sender: FDA-Public Use
  Company Number: PT-ABBOTT-07P-130-0355385-00

PATIENT
  Sex: Female
  Weight: 54 kg

DRUGS (8)
  1. HUMIRA [Suspect]
     Indication: RHEUMATOID ARTHRITIS
     Route: 058
     Dates: start: 20041202, end: 20060401
  2. LEFLUNOMIDE [Concomitant]
     Indication: RHEUMATOID ARTHRITIS
     Dates: start: 20030101
  3. METICORTEN [Concomitant]
     Indication: RHEUMATOID ARTHRITIS
     Dates: start: 20060412
  4. NORVASC [Concomitant]
     Indication: HYPERTENSION
     Dates: start: 20060412
  5. VOLTAREN [Concomitant]
     Indication: RHEUMATOID ARTHRITIS
     Dates: start: 20010101
  6. ZURCAL [Concomitant]
     Indication: PROPHYLAXIS AGAINST GASTROINTESTINAL ULCER
     Dates: start: 20040101
  7. CALCIUM-D-SANDOZ [Concomitant]
     Indication: OSTEOPOROSIS PROPHYLAXIS
     Dosage: 600MG/400 UI
     Dates: start: 20040510
  8. COMMERCIAL HUMIRA [Concomitant]
     Indication: RHEUMATOID ARTHRITIS
     Route: 058
     Dates: start: 20040715

REACTIONS (2)
  - DIVERTICULITIS [None]
  - SUDDEN DEATH [None]
